FAERS Safety Report 10507721 (Version 1)
Quarter: 2014Q3

REPORT INFORMATION
  Report Type: Spontaneous
  Country: US (occurrence: None)
  Receive Date: 20140915
  Receipt Date: 20140915
  Transmission Date: 20150326
  Serious: Yes (Other)
  Sender: FDA-Public Use
  Company Number: 2013-US-001926

PATIENT
  Age: 40 Year
  Sex: Female
  Weight: 59 kg

DRUGS (17)
  1. XYREM [Suspect]
     Active Substance: SODIUM OXYBATE
     Indication: NARCOLEPSY
     Route: 048
     Dates: start: 20130820, end: 2013
  2. ADDERALL [Suspect]
     Active Substance: AMPHETAMINE ASPARTATE\AMPHETAMINE SULFATE\DEXTROAMPHETAMINE SACCHARATE\DEXTROAMPHETAMINE SULFATE
     Indication: SOMNOLENCE
     Dosage: UNK, ORAL
     Route: 048
     Dates: start: 2013, end: 2013
  3. VITAMIN D3 (COLECALCIFEROL) TABLET ONGOING [Concomitant]
  4. IRON (FERROUS SULFATE) TABLET [Concomitant]
  5. SERTRALINE HCL (SERTRALINE HYDROCHLORIDE), ONGOING [Concomitant]
  6. ZOFRAN (ONDANSETRON HYDROCHLORIDE) TABLET ONGOING [Concomitant]
  7. ACYCLOVIR (ACICLOVIR) CAPSULE ONGOING [Concomitant]
  8. VITAMIN B1 (THIAMINE HYDROCHLORIDE) ONGOING [Concomitant]
  9. MAGNESIUM (MAGNESIUM) ONGOING [Concomitant]
  10. VITAMIN B COMPLEX (VITAMIN B COMPLEX) ONGOING [Concomitant]
  11. LEVOTHYROXINE SODIUM (LEVOTHYROXINE SODIUM) ONGOING [Concomitant]
  12. HYDROXYZINE (HYDROXYZINE HYDROCHLORIDE) TABLET ONGOING [Concomitant]
  13. IRON (FERROUS SULFATE) TABLET ONGOING [Concomitant]
  14. SUMATRIPTAN (SUMATRIPTAN SUCCINATE) [Concomitant]
  15. NAPROXEN (NAPROXEN) TABLET ONGOING [Concomitant]
  16. XYREM [Suspect]
     Active Substance: SODIUM OXYBATE
     Indication: CATAPLEXY
     Route: 048
     Dates: start: 20130820, end: 2013
  17. METFORMIN [Concomitant]
     Active Substance: METFORMIN HYDROCHLORIDE

REACTIONS (15)
  - Anhedonia [None]
  - Condition aggravated [None]
  - Weight decreased [None]
  - Panic attack [None]
  - Micturition urgency [None]
  - Pollakiuria [None]
  - Paranoia [None]
  - Decreased appetite [None]
  - Depression [None]
  - Fear [None]
  - Irritable bowel syndrome [None]
  - Headache [None]
  - Anxiety [None]
  - Thinking abnormal [None]
  - Suicidal ideation [None]

NARRATIVE: CASE EVENT DATE: 20130918
